FAERS Safety Report 8342740-8 (Version None)
Quarter: 2012Q2

REPORT INFORMATION
  Report Type: 
  Country: None (occurrence: None)
  Receive Date: 20120508
  Receipt Date: 20120430
  Transmission Date: 20120825
  Serious: Yes (Hospitalization)
  Sender: FDA-Public Use
  Company Number: US-B.I. PHARMACEUTICALS,INC./RIDGEFIELD-2012-BP-03758BP

PATIENT
  Sex: Female
  Weight: 74.39 kg

DRUGS (6)
  1. LISINOPRIL [Concomitant]
     Indication: HYPERTENSION
     Dates: start: 20100726
  2. CRESTOR [Concomitant]
     Dates: start: 20100726
  3. CLONIDINE [Concomitant]
     Dates: start: 20100726
  4. KEPPRA [Concomitant]
     Indication: CONVULSION
     Dosage: 500 MG
     Dates: start: 20100726
  5. METALOL [Concomitant]
     Dates: start: 20100726
  6. PRADAXA [Suspect]
     Dosage: 150 MG
     Dates: start: 20120311

REACTIONS (2)
  - GASTROINTESTINAL HAEMORRHAGE [None]
  - MELAENA [None]
